FAERS Safety Report 7825899-8 (Version None)
Quarter: 2011Q4

REPORT INFORMATION
  Report Type: 
  Country: None (occurrence: None)
  Receive Date: 20111019
  Receipt Date: 20111005
  Transmission Date: 20120403
  Serious: Yes (Death)
  Sender: FDA-Public Use
  Company Number: DZ-ROCHE-1002564

PATIENT
  Sex: Female

DRUGS (1)
  1. HERCEPTIN [Suspect]
     Indication: BREAST CANCER
     Route: 042
     Dates: start: 20101027

REACTIONS (5)
  - MALNUTRITION [None]
  - HEADACHE [None]
  - DISEASE PROGRESSION [None]
  - CARDIAC ARREST [None]
  - METASTASES TO CENTRAL NERVOUS SYSTEM [None]
